FAERS Safety Report 23992056 (Version 3)
Quarter: 2024Q3

REPORT INFORMATION
  Report Type: Report from Study
  Country: US (occurrence: US)
  Receive Date: 20240620
  Receipt Date: 20240802
  Transmission Date: 20241017
  Serious: Yes (Death)
  Sender: ROCHE
  Company Number: US-ROCHE-10000001964

PATIENT
  Age: 53 Year
  Sex: Female

DRUGS (1)
  1. OCREVUS [Suspect]
     Active Substance: OCRELIZUMAB
     Indication: Relapsing multiple sclerosis
     Dosage: MORE DOSAGE INFORMATION IS 300 MG SINGLE-USE VIAL?INFUSE 600MG INTRAVENOUSLY EVERY 6 MONTH
     Route: 042
     Dates: end: 20240404

REACTIONS (1)
  - Death [Fatal]
